FAERS Safety Report 6785160-X (Version None)
Quarter: 2010Q2

REPORT INFORMATION
  Report Type: 
  Country: None (occurrence: None)
  Receive Date: 20100618
  Receipt Date: 20100602
  Transmission Date: 20101027
  Serious: Yes (Other)
  Sender: FDA-Public Use
  Company Number: THQ2010A00854

PATIENT
  Age: 88 Year
  Sex: Male

DRUGS (2)
  1. ACTOS [Suspect]
     Indication: DIABETES MELLITUS
     Dosage: 30 MG, PER ORAL
     Route: 048
     Dates: start: 20080101, end: 20091110
  2. DIAMICRON (GLICLAZIDE) [Concomitant]

REACTIONS (6)
  - ABDOMINAL PAIN UPPER [None]
  - DECREASED APPETITE [None]
  - ENZYME ABNORMALITY [None]
  - NAUSEA [None]
  - PANCREATIC CARCINOMA [None]
  - WEIGHT DECREASED [None]
